FAERS Safety Report 7445517-0 (Version None)
Quarter: 2011Q2

REPORT INFORMATION
  Report Type: 
  Country: None (occurrence: None)
  Receive Date: 20110420
  Receipt Date: 20110406
  Transmission Date: 20111010
  Serious: Yes (Disabling)
  Sender: FDA-Public Use
  Company Number: GR-1185489

PATIENT
  Age: 6 Year
  Sex: Male

DRUGS (4)
  1. CLARIPEN [Concomitant]
  2. TOBRADEX [Suspect]
     Indication: EAR INFECTION
     Dosage: NASAL
     Route: 045
  3. TOBRADEX [Suspect]
     Indication: LARYNGITIS
     Dosage: NASAL
     Route: 045
  4. AEROLIN [Concomitant]

REACTIONS (2)
  - HYPOACUSIS [None]
  - DRUG ADMINISTERED AT INAPPROPRIATE SITE [None]
